FAERS Safety Report 9339418 (Version 1)
Quarter: 2013Q2

REPORT INFORMATION
  Report Type: Spontaneous
  Country: US (occurrence: US)
  Receive Date: 20130610
  Receipt Date: 20130610
  Transmission Date: 20140414
  Serious: Yes (Other)
  Sender: FDA-Public Use
  Company Number: US-PFIZER INC-2013173270

PATIENT
  Age: 55 Year
  Sex: Female
  Weight: 58.5 kg

DRUGS (6)
  1. LYRICA [Suspect]
     Indication: FIBROMYALGIA
     Dosage: 150 MG, 1X/DAY
     Route: 048
     Dates: start: 20130501
  2. LYRICA [Suspect]
     Dosage: 150 MG, 2X/DAY
     Dates: start: 2013
  3. LYRICA [Suspect]
     Dosage: 50 MG, UNK
     Dates: start: 2013
  4. SYNTHROID [Concomitant]
     Dosage: UNK
  5. TOPIRAMATE [Concomitant]
     Dosage: UNK
  6. TRAMADOL [Concomitant]
     Dosage: UNK

REACTIONS (11)
  - Diplopia [Unknown]
  - Dizziness [Unknown]
  - Impaired driving ability [Unknown]
  - Gait disturbance [Unknown]
  - Nausea [Unknown]
  - Thinking abnormal [Unknown]
  - Dysstasia [Unknown]
  - Pain [Unknown]
  - Vomiting [Unknown]
  - Malaise [Unknown]
  - Feeling abnormal [Unknown]
